FAERS Safety Report 14007710 (Version 1)
Quarter: 2017Q3

REPORT INFORMATION
  Report Type: Spontaneous
  Country: JP (occurrence: JP)
  Receive Date: 20170925
  Receipt Date: 20170925
  Transmission Date: 20171128
  Serious: Yes (Hospitalization, Other)
  Sender: FDA-Public Use
  Company Number: JP-FERRINGPH-2017FE04013

PATIENT

DRUGS (2)
  1. DESMOPRESSIN KYOWA [Suspect]
     Active Substance: DESMOPRESSIN
     Indication: DIABETES INSIPIDUS
     Dosage: AT NIGHTTIME
     Route: 045
     Dates: start: 201507
  2. MINIRINMELT [Suspect]
     Active Substance: DESMOPRESSIN ACETATE
     Indication: PRODUCT USED FOR UNKNOWN INDICATION
     Dosage: 60 ?G, 2 TIMES DAILY (2 HOURS AFTER BREAKFAST AND DINNER)
     Route: 048
     Dates: start: 200401

REACTIONS (12)
  - Loss of consciousness [Unknown]
  - Photophobia [Unknown]
  - Hyperacusis [Recovered/Resolved]
  - Hyponatraemia [Recovering/Resolving]
  - Urine output increased [Recovered/Resolved]
  - Head injury [Recovering/Resolving]
  - Visual acuity reduced [Recovered/Resolved]
  - Rash [Recovered/Resolved]
  - Urticaria [Recovered/Resolved]
  - Malaise [Unknown]
  - Dyspnoea [Unknown]
  - Salivary hypersecretion [Recovered/Resolved]

NARRATIVE: CASE EVENT DATE: 200401
